FAERS Safety Report 5597033-9 (Version None)
Quarter: 2008Q1

REPORT INFORMATION
  Report Type: 
  Country: None (occurrence: None)
  Receive Date: 20080121
  Receipt Date: 20071220
  Transmission Date: 20080703
  Serious: No
  Sender: FDA-Public Use
  Company Number: US-BAYER-200716971NA

PATIENT
  Age: 70 Year
  Sex: Male

DRUGS (9)
  1. LEVITRA [Suspect]
     Indication: ERECTILE DYSFUNCTION
     Dosage: AS USED: 10 MG  UNIT DOSE: 10 MG
     Route: 048
  2. LEVITRA [Suspect]
     Dosage: AS USED: 20 MG  UNIT DOSE: 20 MG
     Route: 048
  3. LEVITRA [Suspect]
     Route: 048
  4. ATENOLOL [Concomitant]
  5. HIGH BLOOD PRESSURE MEDICATION [Concomitant]
  6. HTCZ [Concomitant]
  7. ALTACE [Concomitant]
  8. SIMVASTATIN [Concomitant]
  9. VIAGRA [Concomitant]

REACTIONS (1)
  - DRUG INEFFECTIVE [None]
